FAERS Safety Report 23216432 (Version 2)
Quarter: 2025Q4

REPORT INFORMATION
  Report Type: Spontaneous
  Country: US (occurrence: None)
  Receive Date: 20231122
  Receipt Date: 20251125
  Transmission Date: 20260117
  Serious: No
  Sender: AUROBINDO
  Company Number: US-AUROBINDO-AUR-APL-2023-047644

PATIENT
  Age: 80 Year
  Sex: Female
  Weight: 61.2 kg

DRUGS (2)
  1. FLUCONAZOLE [Suspect]
     Active Substance: FLUCONAZOLE
     Indication: Vulvovaginal mycotic infection
     Dosage: 1 DOSAGE FORM, ONCE A DAY
  2. FLUCONAZOLE [Suspect]
     Active Substance: FLUCONAZOLE
     Indication: Candida infection

REACTIONS (8)
  - Drug hypersensitivity [Unknown]
  - Abdominal pain upper [Recovered/Resolved]
  - Abdominal pain [Recovered/Resolved]
  - Eating disorder [Recovered/Resolved]
  - Irritable bowel syndrome [Recovered/Resolved]
  - Ulcer [Recovered/Resolved]
  - Weight decreased [Recovered/Resolved]
  - Therapeutic product effect incomplete [Recovered/Resolved]
